FAERS Safety Report 16569993 (Version 3)
Quarter: 2019Q3

REPORT INFORMATION
  Report Type: Spontaneous
  Country: ES (occurrence: ES)
  Receive Date: 20190715
  Receipt Date: 20190822
  Transmission Date: 20191004
  Serious: Yes (Other)
  Sender: FDA-Public Use
  Company Number: ES-JNJFOC-20190709085

PATIENT
  Age: 42 Year
  Sex: Female
  Weight: 49 kg

DRUGS (1)
  1. INFLIXIMAB, RECOMBINANT [Suspect]
     Active Substance: INFLIXIMAB
     Indication: PROCTITIS ULCERATIVE
     Route: 042
     Dates: start: 201904, end: 201906

REACTIONS (3)
  - Cytomegalovirus infection [Unknown]
  - Therapeutic product effect decreased [Not Recovered/Not Resolved]
  - Proctitis ulcerative [Recovered/Resolved]

NARRATIVE: CASE EVENT DATE: 201904
